FAERS Safety Report 6155038-3 (Version None)
Quarter: 2009Q2

REPORT INFORMATION
  Report Type: 
  Country: None (occurrence: None)
  Receive Date: 20090410
  Receipt Date: 20090401
  Transmission Date: 20091009
  Serious: Yes (Other)
  Sender: FDA-Public Use
  Company Number: 2009US000344

PATIENT
  Age: 60 Year
  Sex: Male

DRUGS (4)
  1. AMBISOME [Suspect]
     Indication: PULMONARY MYCOSIS
     Dosage: 175 MG, UID/QD, IV NOS
     Route: 042
     Dates: start: 20090107, end: 20090119
  2. VFEND [Suspect]
     Indication: PULMONARY MYCOSIS
     Dosage: 800 MG, UID/QD, IV NOS ; 560 MG, UID/QD, IV NOS
     Route: 042
     Dates: start: 20090120, end: 20090120
  3. VFEND [Suspect]
     Indication: PULMONARY MYCOSIS
     Dosage: 800 MG, UID/QD, IV NOS ; 560 MG, UID/QD, IV NOS
     Route: 042
     Dates: start: 20090121, end: 20090121
  4. MEROPEN (MEROPENEM TRIHYDRATE) [Concomitant]

REACTIONS (4)
  - BLOOD CREATINE PHOSPHOKINASE INCREASED [None]
  - HYPOKALAEMIA [None]
  - MUSCLE SPASMS [None]
  - QUADRIPLEGIA [None]
